FAERS Safety Report 4536497-6 (Version None)
Quarter: 2004Q4

REPORT INFORMATION
  Report Type: 
  Country: None (occurrence: None)
  Receive Date: 20041222
  Receipt Date: 20041222
  Transmission Date: 20050328
  Serious: Yes (Hospitalization, Disabling, Other)
  Sender: FDA-Public Use
  Company Number: None

PATIENT
  Age: 57 Year
  Sex: Female
  Weight: 54.4316 kg

DRUGS (4)
  1. CORICIDIN D SRT [Suspect]
     Dosage: ORAL
     Route: 048
     Dates: start: 19990214, end: 19990215
  2. RU-TUSS [Suspect]
     Indication: SINUSITIS
     Dosage: ORAL
     Route: 048
  3. ROBITUSSIN [Concomitant]
  4. AMOXIL [Concomitant]

REACTIONS (5)
  - CEREBROVASCULAR ACCIDENT [None]
  - DEPRESSION [None]
  - ELECTROCARDIOGRAM ABNORMAL [None]
  - HYPOTENSION [None]
  - NERVOUS SYSTEM DISORDER [None]
